FAERS Safety Report 5825797-5 (Version None)
Quarter: 2008Q3

REPORT INFORMATION
  Report Type: 
  Country: None (occurrence: None)
  Receive Date: 20080723
  Receipt Date: 20080718
  Transmission Date: 20090109
  Serious: Yes (Hospitalization)
  Sender: FDA-Public Use
  Company Number: 2008SP005353

PATIENT
  Age: 44 Year
  Sex: Male

DRUGS (5)
  1. SUBUTEX [Suspect]
     Indication: DRUG DEPENDENCE
     Dosage: ; IV
     Route: 042
     Dates: start: 20060101, end: 20080101
  2. VIRAFERONPEG [Suspect]
     Indication: HEPATITIS C
     Dosage: 100 MCG; QW;
     Dates: start: 20060501, end: 20080119
  3. REBETOL [Concomitant]
  4. CORTANCYL [Concomitant]
  5. HEXAQUINE [Concomitant]

REACTIONS (7)
  - DRUG DEPENDENCE [None]
  - HEPATOMEGALY [None]
  - MUSCULOSKELETAL DISORDER [None]
  - PAIN [None]
  - PERICARDIAL EFFUSION [None]
  - PULMONARY ARTERIAL HYPERTENSION [None]
  - RIGHT VENTRICULAR FAILURE [None]
